FAERS Safety Report 11683953 (Version 1)
Quarter: 2015Q4

REPORT INFORMATION
  Report Type: Spontaneous
  Country: US (occurrence: US)
  Receive Date: 20151029
  Receipt Date: 20151029
  Transmission Date: 20160304
  Serious: No
  Sender: FDA-Public Use
  Company Number: US-ROCHE-1475631

PATIENT
  Age: 44 Year
  Sex: Female

DRUGS (1)
  1. CATHFLO ACTIVASE [Suspect]
     Active Substance: ALTEPLASE
     Indication: MEDICAL DEVICE COMPLICATION
     Route: 065

REACTIONS (2)
  - Memory impairment [Not Recovered/Not Resolved]
  - Drug ineffective [Unknown]
